FAERS Safety Report 8927352 (Version 2)
Quarter: 2012Q4

REPORT INFORMATION
  Report Type: 
  Country: US (occurrence: US)
  Receive Date: 20121127
  Receipt Date: 20121128
  Transmission Date: 20130627
  Serious: Yes (Hospitalization)
  Sender: FDA-Public Use
  Company Number: US-JNJFOC-20121106822

PATIENT
  Age: 34 Year
  Sex: Male

DRUGS (2)
  1. LEVAQUIN [Suspect]
     Indication: PROSTATITIS
     Route: 065
     Dates: start: 20080728
  2. ANTI-SMOKING DRUG [Concomitant]
     Indication: SMOKING CESSATION THERAPY
     Route: 065

REACTIONS (1)
  - Fracture of penis [Unknown]
